FAERS Safety Report 10121231 (Version 2)
Quarter: 2015Q4

REPORT INFORMATION
  Report Type: Spontaneous
  Country: CN (occurrence: CN)
  Receive Date: 20140425
  Receipt Date: 20151016
  Transmission Date: 20160304
  Serious: Yes (Other)
  Sender: FDA-Public Use
  Company Number: CN-BAXTER-2014BAX019393

PATIENT
  Age: 79 Year
  Sex: Male
  Weight: 47 kg

DRUGS (2)
  1. 0.9% SODIUM CHLORIDE INJECTION [Suspect]
     Active Substance: SODIUM CHLORIDE
     Indication: MEDICATION DILUTION
     Route: 041
     Dates: start: 20130402, end: 20130403
  2. ACEGLUTAMIDE [Suspect]
     Active Substance: ACEGLUTAMIDE
     Indication: CORONARY ARTERY DISEASE
     Route: 041
     Dates: start: 20130402, end: 20130403

REACTIONS (3)
  - Palpitations [Recovered/Resolved]
  - Tremor [Recovered/Resolved]
  - Frustration [Recovered/Resolved]

NARRATIVE: CASE EVENT DATE: 20130403
